FAERS Safety Report 14224913 (Version 3)
Quarter: 2022Q4

REPORT INFORMATION
  Report Type: Report from Study
  Country: JP (occurrence: JP)
  Receive Date: 20171127
  Receipt Date: 20221219
  Transmission Date: 20230112
  Serious: No
  Sender: FDA-Public Use
  Company Number: JP-BEH-2017085417

PATIENT
  Sex: Male
  Weight: 5.5 kg

DRUGS (2)
  1. HIZENTRA [Suspect]
     Active Substance: HUMAN IMMUNOGLOBULIN G
     Indication: Hypogammaglobulinaemia
     Dosage: 5 MILLILITER, TOT
     Route: 065
     Dates: start: 20151203, end: 20151203
  2. HIZENTRA [Suspect]
     Active Substance: HUMAN IMMUNOGLOBULIN G
     Indication: Primary immunodeficiency syndrome
     Dosage: 5 MILLILITER, QOW
     Route: 065
     Dates: start: 20151211, end: 20160412

REACTIONS (1)
  - Congenital anomaly [Fatal]
